FAERS Safety Report 15722823 (Version 2)
Quarter: 2018Q4

REPORT INFORMATION
  Report Type: Report from Study
  Country: UA (occurrence: UA)
  Receive Date: 20181214
  Receipt Date: 20181217
  Transmission Date: 20190205
  Serious: Yes (Hospitalization, Other)
  Sender: FDA-Public Use
  Company Number: UA-PFIZER INC-2018412691

PATIENT
  Age: 65 Year
  Sex: Female
  Weight: 65 kg

DRUGS (11)
  1. METHYLPREDNISOLONE. [Suspect]
     Active Substance: METHYLPREDNISOLONE
     Indication: ENDOCRINE DISORDER
     Dosage: 12 MG, 1X/DAY
     Route: 048
     Dates: start: 20180605, end: 20181026
  2. PANTOPRAZOLE [Concomitant]
     Active Substance: PANTOPRAZOLE
     Dosage: 40 DF, UNK
     Dates: start: 20180105
  3. PEMBROLIZUMAB. [Suspect]
     Active Substance: PEMBROLIZUMAB
     Dosage: 200 MG, EVERY 3 WEEKS (CYCLE 13)
     Route: 042
     Dates: start: 20170927, end: 20170927
  4. NEBIVOLOL. [Concomitant]
     Active Substance: NEBIVOLOL
     Dosage: 5 DF, UNK
     Dates: start: 20170103
  5. PEMBROLIZUMAB. [Suspect]
     Active Substance: PEMBROLIZUMAB
     Indication: RENAL CELL CARCINOMA
     Dosage: 200 MG, EVERY 3 WEEKS (INFUSION VOLUME: 108 ML)
     Route: 042
     Dates: start: 20170117, end: 20170906
  6. EUTHYROX [Concomitant]
     Active Substance: LEVOTHYROXINE SODIUM
     Dosage: 75 DF, UNK
     Dates: start: 20170403
  7. AXITINIB [Suspect]
     Active Substance: AXITINIB
     Indication: RENAL CELL CARCINOMA
     Dosage: 5 MG, 2X/DAY (STARTING DOSE AT 5 MG BID, FLUCTUATED DOSES)
     Route: 048
     Dates: start: 20170117, end: 20180821
  8. AXITINIB [Suspect]
     Active Substance: AXITINIB
     Dosage: UNK (FLUCTUATED DOSES)
     Route: 048
     Dates: start: 20180822, end: 20180911
  9. LERCAMEN [Concomitant]
     Indication: HYPERTENSION
     Dosage: 5 DF, UNK
     Dates: start: 20180121, end: 20180911
  10. AXITINIB [Suspect]
     Active Substance: AXITINIB
     Dosage: UNK (FLUCTUATED DOSES)
     Route: 048
     Dates: start: 20181007
  11. AXITINIB [Suspect]
     Active Substance: AXITINIB
     Dosage: UNK (FLUCTUATED DOSES)
     Route: 048
     Dates: start: 20180912, end: 20180930

REACTIONS (1)
  - Pneumonia [Recovered/Resolved]

NARRATIVE: CASE EVENT DATE: 20180914
